FAERS Safety Report 22917492 (Version 3)
Quarter: 2023Q4

REPORT INFORMATION
  Report Type: Other
  Country: US (occurrence: US)
  Receive Date: 20230907
  Receipt Date: 20231117
  Transmission Date: 20240110
  Serious: No
  Sender: FDA-Public Use
  Company Number: US-TRAVERE-2023TVT00189

PATIENT
  Age: 61 Year
  Sex: Male

DRUGS (2)
  1. FILSPARI [Suspect]
     Active Substance: SPARSENTAN
     Indication: Product used for unknown indication
     Dosage: 200MG 2 TAB
     Route: 048
  2. FILSPARI [Suspect]
     Active Substance: SPARSENTAN
     Dosage: 200MG 2 TAB
     Route: 048

REACTIONS (7)
  - Blood glucose increased [None]
  - Back pain [None]
  - Pruritus [Unknown]
  - Rash [None]
  - Headache [Unknown]
  - Faeces soft [Unknown]
  - Red blood cell count decreased [Unknown]
